FAERS Safety Report 10864095 (Version 2)
Quarter: 2015Q1

REPORT INFORMATION
  Report Type: Spontaneous
  Country: US (occurrence: US)
  Receive Date: 20150224
  Receipt Date: 20150324
  Transmission Date: 20150721
  Serious: No
  Sender: FDA-Public Use
  Company Number: US-PFIZER INC-2015065185

PATIENT
  Age: 71 Year
  Sex: Male

DRUGS (5)
  1. SUTENT [Suspect]
     Active Substance: SUNITINIB MALATE
     Dosage: 37.5 MG A DAY, (WEEK 1; 2 WEEKS ON AND 1 OFF)
     Dates: start: 201308
  2. SUTENT [Suspect]
     Active Substance: SUNITINIB MALATE
     Dosage: 25 MG A DAY, (WEEK 2; 2 WEEKS ON AND 1 OFF)
     Dates: start: 201308
  3. SUTENT [Suspect]
     Active Substance: SUNITINIB MALATE
     Dosage: 25 MG, (4 WEEKS ON AND 2 OFF)
     Dates: start: 201208
  4. SUTENT [Suspect]
     Active Substance: SUNITINIB MALATE
     Indication: METASTATIC RENAL CELL CARCINOMA
     Dosage: 50 MG, (4 WEEKS ON AND 2 OFF)
     Dates: start: 201207
  5. SUTENT [Suspect]
     Active Substance: SUNITINIB MALATE
     Dosage: 25 MG, (2 WEEKS ON AND 1 WEEK OFF)
     Dates: start: 201305

REACTIONS (2)
  - Dyspepsia [Not Recovered/Not Resolved]
  - Renal pain [Not Recovered/Not Resolved]

NARRATIVE: CASE EVENT DATE: 201207
